FAERS Safety Report 9010874 (Version 2)
Quarter: 2013Q1

REPORT INFORMATION
  Report Type: Spontaneous
  Country: SE (occurrence: SE)
  Receive Date: 20130109
  Receipt Date: 20130114
  Transmission Date: 20140127
  Serious: Yes (Death, Disabling, Other)
  Sender: FDA-Public Use
  Company Number: SE-ASTRAZENECA-2013SE00793

PATIENT
  Age: 40 Year
  Sex: Female
  Weight: 95 kg

DRUGS (6)
  1. ZOLADEX [Suspect]
     Indication: BREAST CANCER
     Route: 058
     Dates: start: 2007, end: 2011
  2. ZOLADEX [Suspect]
     Indication: BREAST CANCER
     Route: 058
     Dates: start: 20110331
  3. ZOLADEX [Suspect]
     Indication: BREAST CANCER
     Route: 058
     Dates: end: 20110720
  4. PAINKILLERS (MORPHINE PREPARATIONS) [Concomitant]
  5. CORTICOSTEROIDS [Concomitant]
  6. VARIETY OF OTHER DRUGS [Concomitant]

REACTIONS (10)
  - Death [Fatal]
  - Blood count abnormal [Unknown]
  - Muscle spasms [Unknown]
  - Generalised oedema [Unknown]
  - Asthenia [Unknown]
  - Muscle atrophy [Unknown]
  - Hot flush [Unknown]
  - Hyperhidrosis [Unknown]
  - Disease progression [Unknown]
  - Off label use [Unknown]
